FAERS Safety Report 9339151 (Version 2)
Quarter: 2013Q3

REPORT INFORMATION
  Report Type: Spontaneous
  Country: GB (occurrence: GB)
  Receive Date: 20130610
  Receipt Date: 20130719
  Transmission Date: 20140515
  Serious: Yes (Hospitalization, Other)
  Sender: FDA-Public Use
  Company Number: GB-PFIZER INC-2013170617

PATIENT
  Age: 44 Year
  Sex: Male
  Weight: 108 kg

DRUGS (2)
  1. TEMSIROLIMUS [Suspect]
     Indication: RENAL CELL CARCINOMA
     Dosage: 25 MG, WEEKLY
     Route: 042
     Dates: start: 201109, end: 201305
  2. CHLORPHENAMINE [Concomitant]
     Dosage: 10 MG, UNK
     Route: 042

REACTIONS (7)
  - Diabetes mellitus [Not Recovered/Not Resolved]
  - Pneumonitis [Not Recovered/Not Resolved]
  - Pulmonary embolism [Unknown]
  - Deep vein thrombosis [Unknown]
  - Disease progression [Unknown]
  - Renal cell carcinoma [Unknown]
  - Lipids increased [Not Recovered/Not Resolved]
